FAERS Safety Report 7222563-3 (Version None)
Quarter: 2011Q1

REPORT INFORMATION
  Report Type: 
  Country: None (occurrence: None)
  Receive Date: 20110112
  Receipt Date: 20110111
  Transmission Date: 20110831
  Serious: Yes (Other)
  Sender: FDA-Public Use
  Company Number: JP-PFIZER INC-JP-WYE-H15264510

PATIENT
  Age: 63 Year
  Sex: Male
  Weight: 71 kg

DRUGS (12)
  1. FENTANYL CITRATE [Suspect]
     Dosage: 50 MG, UNK
     Route: 042
     Dates: start: 20100511, end: 20100511
  2. ATROPINE SULFATE [Suspect]
     Indication: PRODUCT USED FOR UNKNOWN INDICATION
     Dosage: 0.25 MG, 1X/DAY
     Route: 042
     Dates: start: 20100511, end: 20100511
  3. FENTANYL CITRATE [Suspect]
     Dosage: 25 MG, UNK
     Route: 042
     Dates: start: 20100511, end: 20100511
  4. ZOSYN [Suspect]
     Indication: BIOPSY PROSTATE
     Dosage: 4.5 G, 1X/DAY
     Route: 041
     Dates: start: 20100511, end: 20100511
  5. PROPOFOL [Suspect]
     Indication: PRODUCT USED FOR UNKNOWN INDICATION
     Dosage: 140 MG, UNK
     Route: 042
     Dates: start: 20100511, end: 20100511
  6. CERNILTON [Suspect]
     Indication: BENIGN PROSTATIC HYPERPLASIA
     Dosage: 6 TAB, 1X/DAY
     Route: 048
     Dates: start: 20071004
  7. ZOSYN [Suspect]
     Indication: INFECTION PROPHYLAXIS
  8. ADALAT [Suspect]
     Indication: HYPERTENSION
     Dosage: 20 MG, 1X/DAY
     Route: 048
  9. FENTANYL CITRATE [Suspect]
     Indication: PRODUCT USED FOR UNKNOWN INDICATION
     Dosage: 75 MG, UNK
     Route: 042
     Dates: start: 20100511, end: 20100511
  10. CARBOCAIN [Suspect]
     Indication: PRODUCT USED FOR UNKNOWN INDICATION
     Dosage: 40 MG, 1X/DAY
     Route: 042
     Dates: start: 20100511, end: 20100511
  11. PROPOFOL [Suspect]
     Dosage: 30 MG, UNK
     Route: 042
     Dates: start: 20100511, end: 20100511
  12. BLOPRESS [Suspect]
     Indication: HYPERTENSION
     Dosage: 4 MG, 1X/DAY
     Route: 048

REACTIONS (4)
  - DRUG ERUPTION [None]
  - ANAPHYLACTOID SHOCK [None]
  - OXYGEN SATURATION DECREASED [None]
  - BLOOD PRESSURE DECREASED [None]
